FAERS Safety Report 9661006 (Version 1)
Quarter: 2013Q4

REPORT INFORMATION
  Report Type: Spontaneous
  Country: US (occurrence: US)
  Receive Date: 20131031
  Receipt Date: 20131031
  Transmission Date: 20140711
  Serious: Yes (Hospitalization)
  Sender: FDA-Public Use
  Company Number: US-AMGEN-USASP2013076767

PATIENT
  Age: 0 Day
  Sex: Female

DRUGS (2)
  1. ENBREL [Suspect]
     Indication: PRODUCT USED FOR UNKNOWN INDICATION
     Dosage: 50 MG, QWK
     Route: 064
     Dates: start: 200505
  2. METHOTREXATE [Concomitant]
     Dosage: UNK

REACTIONS (3)
  - Premature baby [Recovered/Resolved]
  - Somnolence neonatal [Recovered/Resolved]
  - Gastrointestinal tube insertion [Recovered/Resolved]
